FAERS Safety Report 11661035 (Version 1)
Quarter: 2015Q4

REPORT INFORMATION
  Report Type: Spontaneous
  Country: FI (occurrence: FI)
  Receive Date: 20151026
  Receipt Date: 20151026
  Transmission Date: 20160304
  Serious: Yes (Other)
  Sender: FDA-Public Use
  Company Number: FI-SHIRE-FI201512848

PATIENT
  Age: 6 Year
  Sex: Male

DRUGS (1)
  1. ELVANSE [Suspect]
     Active Substance: LISDEXAMFETAMINE DIMESYLATE
     Indication: ATTENTION DEFICIT/HYPERACTIVITY DISORDER
     Dosage: UNK (15-30 MG), UNKNOWN
     Route: 048

REACTIONS (3)
  - Tourette^s disorder [Unknown]
  - Tic [Unknown]
  - Incorrect dose administered [Unknown]
